FAERS Safety Report 15731483 (Version 1)
Quarter: 2018Q4

REPORT INFORMATION
  Report Type: Spontaneous
  Country: TR (occurrence: TR)
  Receive Date: 20181217
  Receipt Date: 20181217
  Transmission Date: 20190205
  Serious: Yes (Other)
  Sender: FDA-Public Use
  Company Number: TR-INCYTE CORPORATION-2018IN012766

PATIENT

DRUGS (4)
  1. JAKAVI [Suspect]
     Active Substance: RUXOLITINIB
     Dosage: 20 MG, UNK
     Route: 065
  2. JAKAVI [Suspect]
     Active Substance: RUXOLITINIB
     Dosage: 15 MG, UNK
     Route: 065
  3. JAKAVI [Suspect]
     Active Substance: RUXOLITINIB
     Indication: BONE MARROW DISORDER
     Dosage: 15 MG, BID
     Route: 065
  4. THROMBOREDUCTIN [Concomitant]
     Indication: PLATELET COUNT INCREASED
     Route: 065

REACTIONS (5)
  - Drug ineffective for unapproved indication [Unknown]
  - Weight increased [Unknown]
  - Bone marrow failure [Unknown]
  - Swelling [Unknown]
  - Full blood count decreased [Unknown]
